FAERS Safety Report 11016992 (Version 2)
Quarter: 2015Q2

REPORT INFORMATION
  Report Type: Spontaneous
  Country: US (occurrence: US)
  Receive Date: 20150412
  Receipt Date: 20150525
  Transmission Date: 20150821
  Serious: No
  Sender: FDA-Public Use
  Company Number: US-JNJFOC-20130808791

PATIENT
  Sex: Female
  Weight: 58.06 kg

DRUGS (1)
  1. ORTHO EVRA [Suspect]
     Active Substance: ETHINYL ESTRADIOL\NORELGESTROMIN
     Indication: MENSTRUATION IRREGULAR
     Route: 062
     Dates: start: 2003

REACTIONS (8)
  - Abdominal discomfort [Recovered/Resolved]
  - Product quality issue [Unknown]
  - Vomiting [Recovered/Resolved]
  - Product use issue [Not Recovered/Not Resolved]
  - Muscle spasms [Recovered/Resolved]
  - Crying [Recovered/Resolved]
  - Inappropriate schedule of drug administration [Unknown]
  - Dysstasia [Recovered/Resolved]

NARRATIVE: CASE EVENT DATE: 2003
